FAERS Safety Report 8164308-9 (Version None)
Quarter: 2012Q1

REPORT INFORMATION
  Report Type: 
  Country: None (occurrence: None)
  Receive Date: 20120224
  Receipt Date: 20110815
  Transmission Date: 20120608
  Serious: No
  Sender: FDA-Public Use
  Company Number: US-MYLANLABS-2011S1017117

PATIENT
  Age: 80 Year
  Sex: Female

DRUGS (4)
  1. VITAMIN TAB [Concomitant]
  2. TRIAMTERENE AND HYDROCHLOROTHIAZIDE [Concomitant]
     Dosage: 37.5/25MG
  3. LEVOTHROID [Concomitant]
     Indication: HYPOTHYROIDISM
  4. ATENOLOL [Suspect]
     Indication: BLOOD PRESSURE
     Route: 048
     Dates: start: 19920101

REACTIONS (1)
  - OEDEMA PERIPHERAL [None]
